FAERS Safety Report 13049589 (Version 6)
Quarter: 2017Q4

REPORT INFORMATION
  Report Type: Spontaneous
  Country: DE (occurrence: DE)
  Receive Date: 20161221
  Receipt Date: 20171128
  Transmission Date: 20180320
  Serious: Yes (Death, Hospitalization, Other)
  Sender: FDA-Public Use
  Company Number: DE-SA-2016SA228104

PATIENT
  Age: 34 Year
  Sex: Male

DRUGS (6)
  1. MOCLOBEMIDE [Concomitant]
     Active Substance: MOCLOBEMIDE
  2. PANTOPRAZOLE [Concomitant]
     Active Substance: PANTOPRAZOLE
  3. LEMTRADA [Suspect]
     Active Substance: ALEMTUZUMAB
     Indication: RELAPSING-REMITTING MULTIPLE SCLEROSIS
     Route: 041
     Dates: start: 20160308, end: 20160310
  4. PARACETAMOL [Concomitant]
     Active Substance: ACETAMINOPHEN
     Dosage: DOSAGE TEXT: 2 X 1 G
  5. LEMTRADA [Suspect]
     Active Substance: ALEMTUZUMAB
     Indication: RELAPSING-REMITTING MULTIPLE SCLEROSIS
     Route: 041
     Dates: start: 201502, end: 201502
  6. TOPIRAMATE. [Concomitant]
     Active Substance: TOPIRAMATE

REACTIONS (13)
  - Immune thrombocytopenic purpura [Fatal]
  - Anti-platelet antibody positive [Fatal]
  - Cerebellar haemorrhage [Fatal]
  - Platelet count decreased [Fatal]
  - Haemorrhage [Unknown]
  - Haemorrhagic diathesis [Fatal]
  - Melaena [Fatal]
  - Haematuria [Fatal]
  - Subarachnoid haemorrhage [Unknown]
  - Haematoma [Fatal]
  - Headache [Unknown]
  - Petechiae [Fatal]
  - Brain stem haemorrhage [Fatal]

NARRATIVE: CASE EVENT DATE: 2016
